FAERS Safety Report 25954973 (Version 1)
Quarter: 2025Q4

REPORT INFORMATION
  Report Type: Spontaneous
  Country: GB (occurrence: GB)
  Receive Date: 20251024
  Receipt Date: 20251024
  Transmission Date: 20260117
  Serious: Yes (Other)
  Sender: AUROBINDO
  Company Number: GB-MHRA-TPP18241189C10350623YC1760457627470

PATIENT
  Age: 57 Year
  Sex: Male
  Weight: 78 kg

DRUGS (15)
  1. AMLODIPINE [Suspect]
     Active Substance: AMLODIPINE BESYLATE
     Indication: Ill-defined disorder
     Dosage: 10 MILLIGRAM, DAILY (TAKE ONE DAILY)
     Route: 065
     Dates: start: 20240911
  2. Acopair [Concomitant]
     Indication: Ill-defined disorder
     Dosage: 1 DOSAGE FORM, ONCE A DAY (INHALE 1 DOSE ONCE DAILY)
     Dates: start: 20240911
  3. FLUTICASONE FUROATE\SALMETEROL XINAFOATE [Concomitant]
     Active Substance: FLUTICASONE FUROATE\SALMETEROL XINAFOATE
     Indication: Ill-defined disorder
     Dosage: 1 DOSAGE FORM, TWO TIMES A DAY (INHALE 1 DOSE TWICE DAILY)
     Route: 065
     Dates: start: 20240911
  4. ALLOPURINOL [Concomitant]
     Active Substance: ALLOPURINOL
     Indication: Ill-defined disorder
     Dosage: 2 DOSAGE FORM, DAILY (TAKE TWO DAILY)
     Route: 065
     Dates: start: 20240911
  5. ATORVASTATIN [Concomitant]
     Active Substance: ATORVASTATIN
     Indication: Ill-defined disorder
     Dosage: 1 DOSAGE FORM, DAILY (TAKE ONE DAILY)
     Route: 065
     Dates: start: 20240911
  6. CARBOCYSTEINE [Concomitant]
     Active Substance: CARBOCYSTEINE
     Indication: Ill-defined disorder
     Dosage: 2 DOSAGE FORM, 3 TIMES A DAY (2TDS)
     Route: 065
     Dates: start: 20240911
  7. DOXAZOSIN [Concomitant]
     Active Substance: DOXAZOSIN MESYLATE
     Indication: Ill-defined disorder
     Dosage: 1 DOSAGE FORM, DAILY (TAKE ONE DAILY)
     Route: 065
     Dates: start: 20240911
  8. DOXYCYCLINE [Concomitant]
     Active Substance: DOXYCYCLINE
     Indication: Ill-defined disorder
     Dosage: TWO NOW THEN ONE DAILY (RESCUE COURSE)
     Route: 065
     Dates: start: 20240911
  9. OMEPRAZOLE [Concomitant]
     Active Substance: OMEPRAZOLE
     Indication: Ill-defined disorder
     Dosage: 2 DOSAGE FORM, DAILY (TAKE TWO DAILY)
     Route: 065
     Dates: start: 20240911
  10. PREDNISOLONE [Concomitant]
     Active Substance: PREDNISOLONE
     Indication: Ill-defined disorder
     Dosage: 8 DOSAGE FORM, ONCE A DAY (EIGHT TO BE TAKEN ONCE DAILY FOR FIVE DAYS (RES...)
     Route: 065
     Dates: start: 20240911
  11. VENTOLIN [Concomitant]
     Active Substance: ALBUTEROL SULFATE
     Indication: Ill-defined disorder
     Dosage: 2 DOSAGE FORM, PRN (INHALE 2 DOSES AS NEEDED UP TO FOUR TIMES A DAY)
     Dates: start: 20240911
  12. Zerocream [Concomitant]
     Indication: Ill-defined disorder
     Dosage: APPLY TO DRY SKIN WHEN NEEDED
     Route: 065
     Dates: start: 20240911
  13. Invit [Concomitant]
     Indication: Ill-defined disorder
     Dosage: 1 DOSAGE FORM, DAILY (TAKE ONE DAILY FOR THE PREVENTION OF VITAMIND D...)
     Route: 065
     Dates: start: 20241218, end: 20250815
  14. THIAMINE [Concomitant]
     Active Substance: THIAMINE
     Indication: Ill-defined disorder
     Dosage: 1 DOSAGE FORM, DAILY (TAKE ONE DAILY)
     Route: 065
     Dates: start: 20241218
  15. Valupak vitamin d3 [Concomitant]
     Indication: Ill-defined disorder
     Dosage: 1 DOSAGE FORM, ONCE A DAY (TAKE 1 TABLET ONCE A DAY FOR THE PREVENTION OF ...)
     Route: 065
     Dates: start: 20250815

REACTIONS (1)
  - Joint swelling [Unknown]

NARRATIVE: CASE EVENT DATE: 20251014
